FAERS Safety Report 9502909 (Version 1)
Quarter: 2013Q1

REPORT INFORMATION
  Report Type: Spontaneous
  Country: US (occurrence: None)
  Receive Date: 20130225
  Receipt Date: 20130225
  Transmission Date: 20140127
  Serious: No
  Sender: FDA-Public Use
  Company Number: 366514

PATIENT
  Age: 57 Year
  Sex: Male

DRUGS (3)
  1. VICTOZA [Suspect]
     Route: 058
     Dates: start: 20121031
  2. APIDRA [Suspect]
  3. LANTUS (INSULINE GLARGINE) [Concomitant]

REACTIONS (2)
  - Skin discolouration [None]
  - Pruritus generalised [None]
